FAERS Safety Report 5131513-5 (Version None)
Quarter: 2006Q4

REPORT INFORMATION
  Report Type: 
  Country: None (occurrence: None)
  Receive Date: 20061016
  Receipt Date: 20061003
  Transmission Date: 20070319
  Serious: Yes (Hospitalization)
  Sender: FDA-Public Use
  Company Number: 2006121609

PATIENT
  Age: 86 Year
  Sex: Female

DRUGS (1)
  1. DILANTIN [Suspect]
     Dosage: ORAL
     Route: 048

REACTIONS (1)
  - ANTICONVULSANT DRUG LEVEL INCREASED [None]
